FAERS Safety Report 6370295-6 (Version None)
Quarter: 2009Q3

REPORT INFORMATION
  Report Type: 
  Country: None (occurrence: None)
  Receive Date: 20090923
  Receipt Date: 20090914
  Transmission Date: 20100115
  Serious: Yes (Hospitalization)
  Sender: FDA-Public Use
  Company Number: DE-AMGEN-US365351

PATIENT
  Age: 62 Year
  Sex: Female

DRUGS (10)
  1. ENBREL [Suspect]
     Indication: PSORIATIC ARTHROPATHY
     Route: 058
     Dates: start: 20080317, end: 20090301
  2. PIROXICAM [Concomitant]
     Dosage: 20MG; FREQUENCY UNKNOWN
     Route: 065
  3. VALORON N [Concomitant]
     Dosage: 200MG/16MG; FREQUENCY UNKNOWN
     Route: 065
  4. OXYBUTYNIN CHLORIDE [Concomitant]
     Dosage: 2.5MG; FREQUENCY UNKNOWN
     Route: 065
  5. COAPROVEL [Concomitant]
     Route: 065
  6. VERAPAMIL [Concomitant]
     Dosage: 480MG; FREQUENCY UNKNOWN
     Route: 065
  7. NORFLEX [Concomitant]
     Dosage: 100MG; FREQUENCY UNKNOWN
     Route: 065
  8. SYMBICORT [Concomitant]
     Route: 065
  9. ARAVA [Concomitant]
     Route: 048
  10. AMITRIPTYLINE HCL [Concomitant]
     Dosage: 25MG; FREQUENCY UNKNOWN
     Route: 065

REACTIONS (4)
  - ARTHRODESIS [None]
  - IMPAIRED HEALING [None]
  - INFLAMMATION OF WOUND [None]
  - WOUND NECROSIS [None]
